FAERS Safety Report 6987929-5 (Version None)
Quarter: 2010Q3

REPORT INFORMATION
  Report Type: 
  Country: None (occurrence: None)
  Receive Date: 20100916
  Receipt Date: 20100721
  Transmission Date: 20110219
  Serious: No
  Sender: FDA-Public Use
  Company Number: US-ABBOTT-10P-163-0660367-00

PATIENT
  Sex: Female

DRUGS (7)
  1. TRILIPIX [Suspect]
     Indication: BLOOD TRIGLYCERIDES INCREASED
     Route: 048
     Dates: start: 20100601, end: 20100601
  2. CRESTOR [Suspect]
     Indication: BLOOD TRIGLYCERIDES INCREASED
  3. NIACIN [Suspect]
     Indication: BLOOD TRIGLYCERIDES INCREASED
     Dosage: OVER THE COUNTER
  4. BENICAR [Concomitant]
     Indication: HYPERTENSION
     Route: 048
  5. HYDROCHLOROTHIAZIDE [Concomitant]
     Indication: HYPERTENSION
  6. CALCIUM WITH VITAMIN D [Concomitant]
     Indication: PRODUCT USED FOR UNKNOWN INDICATION
  7. FISH OIL [Concomitant]
     Indication: PRODUCT USED FOR UNKNOWN INDICATION

REACTIONS (3)
  - GLOMERULAR FILTRATION RATE DECREASED [None]
  - OEDEMA PERIPHERAL [None]
  - RENAL IMPAIRMENT [None]
